FAERS Safety Report 9675629 (Version 1)
Quarter: 2013Q4

REPORT INFORMATION
  Report Type: Spontaneous
  Country: AU (occurrence: AU)
  Receive Date: 20131107
  Receipt Date: 20131107
  Transmission Date: 20140711
  Serious: Yes (Hospitalization, Other)
  Sender: FDA-Public Use
  Company Number: AU-PFIZER INC-2013316516

PATIENT
  Age: 66 Year
  Sex: Female

DRUGS (11)
  1. PREGABALIN [Suspect]
     Indication: TRIGEMINAL NEURALGIA
     Dosage: 75 MG, 2X/DAY
  2. ATORVASTATIN CALCIUM [Suspect]
     Indication: HYPERLIPIDAEMIA
     Dosage: 40 MG, DAILY
  3. ASPIRIN [Concomitant]
  4. IRBESARTAN [Concomitant]
  5. FRUSEMIDE [Concomitant]
  6. SPIRONOLACTONE [Concomitant]
  7. SODIUM VALPROATE [Concomitant]
  8. VENLAFAXINE [Concomitant]
  9. OXYCODONE [Concomitant]
  10. PARACETAMOL [Concomitant]
  11. BUDESONIDE/FORMOTEROL FUMARATE [Concomitant]

REACTIONS (3)
  - Rhabdomyolysis [Recovering/Resolving]
  - Acute prerenal failure [Recovered/Resolved]
  - Myositis [Unknown]
